FAERS Safety Report 12573726 (Version 1)
Quarter: 2016Q3

REPORT INFORMATION
  Report Type: Spontaneous
  Country: US (occurrence: US)
  Receive Date: 20160720
  Receipt Date: 20160720
  Transmission Date: 20161109
  Serious: No
  Sender: FDA-Public Use
  Company Number: US-BEH-2016070891

PATIENT
  Age: 71 Year
  Sex: Female
  Weight: 70.3 kg

DRUGS (40)
  1. HIZENTRA [Suspect]
     Active Substance: HUMAN IMMUNOGLOBULIN G
     Indication: IMMUNODEFICIENCY COMMON VARIABLE
     Dosage: 10 G, QW
     Route: 058
  2. TUDORZA PRESSAIR [Concomitant]
     Active Substance: ACLIDINIUM BROMIDE
  3. EPIPEN [Concomitant]
     Active Substance: EPINEPHRINE
  4. PROPRANOLOL [Concomitant]
     Active Substance: PROPRANOLOL\PROPRANOLOL HYDROCHLORIDE
  5. NEURONTIN [Concomitant]
     Active Substance: GABAPENTIN
  6. ADVAIR HFA [Concomitant]
     Active Substance: FLUTICASONE PROPIONATE\SALMETEROL XINAFOATE
  7. SELENIUM [Concomitant]
     Active Substance: SELENIUM
  8. ALPHA LIPOIC ACID [Concomitant]
     Active Substance: .ALPHA.-LIPOIC ACID
  9. POTASSIUM IODIDE. [Concomitant]
     Active Substance: POTASSIUM IODIDE
  10. REFRESH P.M. [Concomitant]
     Active Substance: MINERAL OIL\PETROLATUM
  11. XOPENEX [Concomitant]
     Active Substance: LEVALBUTEROL HYDROCHLORIDE
  12. PROLIA [Concomitant]
     Active Substance: DENOSUMAB
  13. ASTRAGALUS ROOT [Concomitant]
  14. CITRUS SINENSIS [Concomitant]
  15. COENZYME Q10 [Concomitant]
     Active Substance: UBIDECARENONE
  16. CONCEPT DHA [Concomitant]
     Active Substance: ASCORBIC ACID\BIOTIN\CALCIUM PANTOTHENATE\CUPRIC SULFATE\CYANOCOBALAMIN\FERROUS FUMARATE\FOLIC ACID\IRON\MAGNESIUM SULFATE\NIACIN\OMEGA-3-ACID ETHYL ESTERS\PYRIDOXINE HYDROCHLORIDE\RIBOFLAVIN\THIAMINE MONONITRATE\ZINC SULFATE
  17. RESTASIS [Concomitant]
     Active Substance: CYCLOSPORINE
  18. CLONAZEPAM. [Concomitant]
     Active Substance: CLONAZEPAM
  19. LISINOPRIL. [Concomitant]
     Active Substance: LISINOPRIL
  20. LORTAB [Concomitant]
     Active Substance: ACETAMINOPHEN\HYDROCODONE BITARTRATE
  21. VITAMIN C [Concomitant]
     Active Substance: ASCORBIC ACID
  22. CALCIUM [Concomitant]
     Active Substance: CALCIUM
  23. MUCINEX [Concomitant]
     Active Substance: GUAIFENESIN
  24. STRONTEIUM [Concomitant]
  25. BLACK CUMIN SEED OIL [Concomitant]
  26. TEMAZEPAM. [Concomitant]
     Active Substance: TEMAZEPAM
  27. METASTRON [Concomitant]
     Active Substance: STRONTIUM CHLORIDE SR-89
  28. MYRBETRIQ [Concomitant]
     Active Substance: MIRABEGRON
  29. EFFEXOR [Concomitant]
     Active Substance: VENLAFAXINE HYDROCHLORIDE
  30. VITAMIN K [Concomitant]
     Active Substance: PHYTONADIONE
  31. MULTIVITAMINS WITH MINERALS        /02319901/ [Concomitant]
  32. MAG-OX [Concomitant]
     Active Substance: MAGNESIUM OXIDE
  33. NATTOKINASE [Concomitant]
     Active Substance: NATTOKINASE
  34. ARMOUR THYROID [Concomitant]
     Active Substance: THYROID, PORCINE
  35. TRAZODONE [Concomitant]
     Active Substance: TRAZODONE HYDROCHLORIDE
  36. VITAMIN D                          /00107901/ [Concomitant]
     Active Substance: ERGOCALCIFEROL
  37. OMEGA-3                            /01866101/ [Concomitant]
     Active Substance: OMEGA-3 FATTY ACIDS
  38. FERRO-SEQUELS [Concomitant]
  39. OMEGA 3 FISH OIL                   /01334101/ [Concomitant]
     Active Substance: FISH OIL
  40. ACIDOPHILUS PROBIOTIC [Concomitant]

REACTIONS (1)
  - Pruritus [Unknown]

NARRATIVE: CASE EVENT DATE: 201603
